FAERS Safety Report 25775594 (Version 2)
Quarter: 2025Q4

REPORT INFORMATION
  Report Type: Spontaneous
  Country: US (occurrence: US)
  Receive Date: 20250909
  Receipt Date: 20251009
  Transmission Date: 20260117
  Serious: No
  Sender: Haleon PLC
  Company Number: US-HALEON-2261349

PATIENT
  Age: 63 Year
  Sex: Female

DRUGS (1)
  1. TUMS CHEWY BITES MIXED FRUIT [Suspect]
     Active Substance: CALCIUM CARBONATE
     Indication: Dyspepsia
     Dosage: 10 - TABLETS (TAB)
     Dates: start: 20250901

REACTIONS (2)
  - Intentional overdose [Unknown]
  - Product label issue [Unknown]
